FAERS Safety Report 6732975-X (Version None)
Quarter: 2010Q2

REPORT INFORMATION
  Report Type: 
  Country: None (occurrence: None)
  Receive Date: 20100517
  Receipt Date: 20100505
  Transmission Date: 20101027
  Serious: Yes (Other)
  Sender: FDA-Public Use
  Company Number: DSA_43126_2010

PATIENT
  Sex: Female
  Weight: 70.7611 kg

DRUGS (22)
  1. XENAZINE [Suspect]
     Indication: DYSKINESIA
     Dosage: 25 MG QD, ORAL, 12.5 MG QD, ORAL
     Dates: start: 20100311, end: 20100101
  2. XENAZINE [Suspect]
     Indication: DYSKINESIA
     Dosage: 25 MG QD, ORAL, 12.5 MG QD, ORAL
     Dates: start: 20081219, end: 20100310
  3. BACLOFEN [Concomitant]
  4. ZANAFLEX [Concomitant]
  5. FLEXERIL [Concomitant]
  6. XANAX [Concomitant]
  7. CHANTIX [Concomitant]
  8. AMBIEN [Concomitant]
  9. STADOL [Concomitant]
  10. SIMVASTATIN [Concomitant]
  11. CYMBALTA [Concomitant]
  12. IMITREX [Concomitant]
  13. ACETAMINOPHEN AND HYDROCODONE BITARTRATE [Concomitant]
  14. FROVA [Concomitant]
  15. FENTANYL [Concomitant]
  16. PHENERGAN [Concomitant]
  17. ONDANSETRON [Concomitant]
  18. ATIVAN [Concomitant]
  19. TOPAMAX [Concomitant]
  20. DIASTAT ACUDIAL [Concomitant]
  21. DOMPERIDONE [Concomitant]
  22. IBUPROFEN [Concomitant]

REACTIONS (9)
  - ABNORMAL BEHAVIOUR [None]
  - BLOOD PRESSURE INCREASED [None]
  - CONDITION AGGRAVATED [None]
  - CYCLIC VOMITING SYNDROME [None]
  - MIGRAINE [None]
  - NO THERAPEUTIC RESPONSE [None]
  - REFUSAL OF TREATMENT BY PATIENT [None]
  - SUICIDAL IDEATION [None]
  - WEIGHT INCREASED [None]
